FAERS Safety Report 4679475-9 (Version None)
Quarter: 2005Q2

REPORT INFORMATION
  Report Type: 
  Country: None (occurrence: None)
  Receive Date: 20050602
  Receipt Date: 20050428
  Transmission Date: 20051028
  Serious: Yes (Hospitalization, Other)
  Sender: FDA-Public Use
  Company Number: AR-SANOFI-SYNTHELABO-D01200503230

PATIENT
  Sex: Male
  Weight: 62 kg

DRUGS (6)
  1. CLOPIDOGREL BISULFATE [Suspect]
     Indication: ATRIAL FIBRILLATION
     Route: 048
     Dates: start: 20041117, end: 20050402
  2. PLACEBO [Suspect]
     Indication: ATRIAL FIBRILLATION
     Dosage: 150 MG/DAY FOR 2 WEEKS FOLLOWING BY 300 MG/DAY
     Route: 048
     Dates: start: 20041117, end: 20050402
  3. ASPIRIN [Concomitant]
     Indication: ATRIAL FIBRILLATION
     Route: 048
     Dates: start: 20041117
  4. CIPROFLOXACIN [Concomitant]
     Indication: URINARY TRACT INFECTION
     Route: 065
     Dates: start: 20050420, end: 20050426
  5. ENALAPRIL MALEATE [Concomitant]
     Route: 065
  6. AMLODIPINE [Concomitant]
     Route: 065

REACTIONS (4)
  - BLOOD BILIRUBIN UNCONJUGATED INCREASED [None]
  - COOMBS DIRECT TEST POSITIVE [None]
  - HAEMOLYSIS [None]
  - HAEMORRHAGIC STROKE [None]
